FAERS Safety Report 5344474-0 (Version None)
Quarter: 2007Q2

REPORT INFORMATION
  Report Type: 
  Country: None (occurrence: None)
  Receive Date: 20070604
  Receipt Date: 20070523
  Transmission Date: 20071010
  Serious: Yes (Other)
  Sender: FDA-Public Use
  Company Number: FR-PFIZER INC-2007028496

PATIENT
  Sex: Male
  Weight: 73 kg

DRUGS (15)
  1. LYRICA [Suspect]
     Indication: NEURALGIA
  2. PARACETAMOL [Concomitant]
  3. ATENOLOL [Concomitant]
     Route: 048
  4. NAFTIDROFURYL OXALATE [Concomitant]
     Route: 048
     Dates: start: 20060711
  5. ASPIRIN [Concomitant]
     Route: 048
     Dates: start: 20060711
  6. WARFARIN SODIUM [Concomitant]
     Route: 048
     Dates: start: 20060711
  7. FUROSEMIDE [Concomitant]
     Route: 048
  8. RAMIPRIL [Concomitant]
     Route: 048
  9. ATORVASTATIN [Concomitant]
  10. PANTOPRAZOLE SODIUM [Concomitant]
  11. TRAMADOL HYDROCHLORIDE AND ACETAMINOPHEN [Concomitant]
     Route: 048
     Dates: start: 20070330
  12. ALFUZOSIN [Concomitant]
  13. ZINC GLUCONATE [Concomitant]
  14. TIMOLOL MALEATE [Concomitant]
     Route: 031
  15. CLONAZEPAM [Concomitant]

REACTIONS (3)
  - GAIT DISTURBANCE [None]
  - PAIN IN EXTREMITY [None]
  - PERIPHERAL COLDNESS [None]
